FAERS Safety Report 4457784-6 (Version None)
Quarter: 2004Q3

REPORT INFORMATION
  Report Type: 
  Country: None (occurrence: None)
  Receive Date: 20040922
  Receipt Date: 20040909
  Transmission Date: 20050211
  Serious: Yes (Hospitalization)
  Sender: FDA-Public Use
  Company Number: 2004065288

PATIENT
  Age: 84 Year
  Sex: Female

DRUGS (8)
  1. NEURONTIN [Suspect]
     Indication: HERPES ZOSTER
  2. MADOPAR (BENSERAZIDE HYDROCHLORIDE, LEVODOPA) [Concomitant]
  3. PAROXETINE HCL [Concomitant]
  4. FUROSEMIDE [Concomitant]
  5. ALPRAZOLAM [Concomitant]
  6. OEMPRAZOLE(OMEPRAZOLE) [Concomitant]
  7. DILTIAZEM HYDROCHLORIDE [Concomitant]
  8. GINKO BILOBA EXTRACT (GINKO  BILOBA EXTRACT) [Concomitant]

REACTIONS (9)
  - CONDITION AGGRAVATED [None]
  - DISORIENTATION [None]
  - FALL [None]
  - GAIT DISTURBANCE [None]
  - NERVOUS SYSTEM DISORDER [None]
  - PARKINSON'S DISEASE [None]
  - SOMNOLENCE [None]
  - VERTIGO [None]
  - WRIST FRACTURE [None]
